FAERS Safety Report 14774499 (Version 8)
Quarter: 2021Q3

REPORT INFORMATION
  Report Type: Report from Study
  Country: BR (occurrence: BR)
  Receive Date: 20180418
  Receipt Date: 20210922
  Transmission Date: 20211014
  Serious: Yes (Other)
  Sender: FDA-Public Use
  Company Number: PHHY2017BR190792

PATIENT
  Age: 44 Year
  Sex: Female
  Weight: 57 kg

DRUGS (23)
  1. COSENTYX [Suspect]
     Active Substance: SECUKINUMAB
     Dosage: 150 MG, QMO
     Route: 058
     Dates: start: 20171201
  2. DESINFLEX [Concomitant]
     Indication: PRODUCT USED FOR UNKNOWN INDICATION
     Dosage: UNK
     Route: 065
  3. AMATO [Concomitant]
     Active Substance: TOPIRAMATE
     Indication: BRAIN MALFORMATION
     Dosage: 1 DF, QD
     Route: 048
  4. VITAMIN D [Concomitant]
     Active Substance: VITAMIN D NOS
     Indication: SUPPLEMENTATION THERAPY
     Dosage: 1 DF, QW
     Route: 048
  5. COSENTYX [Suspect]
     Active Substance: SECUKINUMAB
     Indication: ENTHESOPATHY
     Dosage: 150 MG, QW
     Route: 058
     Dates: start: 20171117
  6. COSENTYX [Suspect]
     Active Substance: SECUKINUMAB
     Dosage: UNK (1 AMPOULE EVERY 15 DAYS)
     Route: 058
  7. COSENTYX [Suspect]
     Active Substance: SECUKINUMAB
     Indication: ANKYLOSING SPONDYLITIS
     Dosage: 150 MG, QW
     Route: 058
     Dates: start: 20171103
  8. COSENTYX [Suspect]
     Active Substance: SECUKINUMAB
     Indication: SACROILIITIS
     Dosage: 150 MG, QW
     Route: 058
     Dates: start: 20171110
  9. COSENTYX [Suspect]
     Active Substance: SECUKINUMAB
     Dosage: 150 MG, QW
     Route: 058
     Dates: start: 20171124
  10. COSENTYX [Suspect]
     Active Substance: SECUKINUMAB
     Dosage: UNK (1 AMPOULE EVERY 12 HR)
     Route: 058
  11. TECNOMET [Concomitant]
     Active Substance: METHOTREXATE
     Indication: PRODUCT USED FOR UNKNOWN INDICATION
     Dosage: UNK
     Route: 065
  12. MIOSAN [Concomitant]
     Active Substance: CYCLOBENZAPRINE
     Indication: PRODUCT USED FOR UNKNOWN INDICATION
     Dosage: UNK
     Route: 065
  13. COSENTYX [Suspect]
     Active Substance: SECUKINUMAB
     Dosage: UNK
     Route: 065
     Dates: start: 20180124
  14. COSENTYX [Suspect]
     Active Substance: SECUKINUMAB
     Dosage: 1 DF, QMO (8 MONTHS AGO)
     Route: 058
  15. GABAPENTIN. [Suspect]
     Active Substance: GABAPENTIN
     Indication: PAIN
     Dosage: 400 MG (EVERY 8 HOURS)
     Route: 065
  16. DULOXETINE HYDROCHLORIDE. [Suspect]
     Active Substance: DULOXETINE HYDROCHLORIDE
     Indication: PRODUCT USED FOR UNKNOWN INDICATION
     Dosage: UNK
     Route: 065
  17. COSENTYX [Suspect]
     Active Substance: SECUKINUMAB
     Dosage: 150 MG, UNKNOWN
     Route: 065
  18. CALDE [Concomitant]
     Active Substance: CALCIUM CARBONATE\CHOLECALCIFEROL
     Indication: PRODUCT USED FOR UNKNOWN INDICATION
     Dosage: UNK
     Route: 065
  19. COSENTYX [Suspect]
     Active Substance: SECUKINUMAB
     Dosage: 150 MG, UNKNOWN
     Route: 058
     Dates: end: 201907
  20. TECNOMET [Suspect]
     Active Substance: METHOTREXATE
     Indication: PRODUCT USED FOR UNKNOWN INDICATION
     Route: 065
  21. RANITIDINE. [Concomitant]
     Active Substance: RANITIDINE
     Indication: PRODUCT USED FOR UNKNOWN INDICATION
     Dosage: UNK
     Route: 065
  22. VELIJA [Concomitant]
     Active Substance: DULOXETINE HYDROCHLORIDE
     Indication: ANXIETY
     Dosage: 1 DF, QD
     Route: 048
  23. TARGIFOR [Concomitant]
     Indication: PRODUCT USED FOR UNKNOWN INDICATION
     Dosage: UNK
     Route: 065

REACTIONS (35)
  - Pain [Not Recovered/Not Resolved]
  - Pollakiuria [Recovering/Resolving]
  - Fibromyalgia [Unknown]
  - Symptom recurrence [Not Recovered/Not Resolved]
  - Musculoskeletal stiffness [Not Recovered/Not Resolved]
  - Incorrect product formulation administered [Unknown]
  - Headache [Recovering/Resolving]
  - Diarrhoea [Recovering/Resolving]
  - Vomiting [Recovering/Resolving]
  - Neck pain [Recovering/Resolving]
  - Fear [Unknown]
  - Weight fluctuation [Unknown]
  - Discomfort [Unknown]
  - Therapeutic response decreased [Unknown]
  - Inappropriate schedule of product administration [Unknown]
  - Arteriovenous malformation [Not Recovered/Not Resolved]
  - Malaise [Recovering/Resolving]
  - Speech disorder [Unknown]
  - Sacroiliitis [Unknown]
  - Asthenia [Recovering/Resolving]
  - Diplopia [Recovering/Resolving]
  - Alopecia [Unknown]
  - Dizziness [Recovered/Resolved]
  - Fatigue [Unknown]
  - Pelvic pain [Unknown]
  - Product prescribing error [Not Recovered/Not Resolved]
  - Weight increased [Unknown]
  - Swelling [Unknown]
  - Tremor [Recovering/Resolving]
  - Arthralgia [Recovering/Resolving]
  - Sleep disorder [Recovering/Resolving]
  - Sinusitis [Recovered/Resolved]
  - Product use in unapproved indication [Unknown]
  - Concomitant disease aggravated [Recovering/Resolving]
  - Drug ineffective [Not Recovered/Not Resolved]

NARRATIVE: CASE EVENT DATE: 20171103
